FAERS Safety Report 15889869 (Version 1)
Quarter: 2019Q1

REPORT INFORMATION
  Report Type: Spontaneous
  Country: US (occurrence: US)
  Receive Date: 20190130
  Receipt Date: 20190130
  Transmission Date: 20190417
  Serious: Yes (Death)
  Sender: FDA-Public Use
  Company Number: None

PATIENT
  Age: 83 Year
  Sex: Female
  Weight: 90 kg

DRUGS (1)
  1. COMBIGAN [Suspect]
     Active Substance: BRIMONIDINE TARTRATE\TIMOLOL MALEATE
     Indication: INTRAOCULAR PRESSURE INCREASED
     Dosage: ?          QUANTITY:1 DROP(S);?
     Route: 047
     Dates: start: 20190109, end: 20190115

REACTIONS (6)
  - Urinary incontinence [None]
  - Bronchitis [None]
  - Feeling hot [None]
  - Loss of consciousness [None]
  - Urinary tract infection [None]
  - Dizziness [None]

NARRATIVE: CASE EVENT DATE: 20190111
